FAERS Safety Report 7030249-3 (Version None)
Quarter: 2010Q4

REPORT INFORMATION
  Report Type: 
  Country: None (occurrence: None)
  Receive Date: 20101001
  Receipt Date: 20100922
  Transmission Date: 20110411
  Serious: Yes (Hospitalization)
  Sender: FDA-Public Use
  Company Number: 2010US003897

PATIENT
  Sex: Male
  Weight: 75 kg

DRUGS (15)
  1. PROGRAF [Suspect]
     Indication: LUNG TRANSPLANT
     Dosage: 1 MG, BID, ORAL
     Route: 048
     Dates: start: 20070304
  2. VITAMINS NOS (VITAMINS NOS) [Concomitant]
  3. OSCAL (CALCIUM) [Concomitant]
  4. FERROUS SULFATE TAB [Concomitant]
  5. PREDNISONE TAB [Concomitant]
  6. OMEPRAZOLE [Concomitant]
  7. GABAPENTIN [Concomitant]
  8. ACYCLOVIR [Concomitant]
  9. MAGNESIUM OXIDE (MAGNESIUM OXIDE) [Concomitant]
  10. BACTRIM DS [Concomitant]
  11. AZATHIOPRINE [Concomitant]
  12. METOPROLOL SUCCINATE [Concomitant]
  13. ALENDRONATE SODIUM [Concomitant]
  14. NOVOLIN (INSULIN) [Concomitant]
  15. HUMULIN (INSULIN HUMAN) [Concomitant]

REACTIONS (4)
  - BONE DISORDER [None]
  - CHRONIC OBSTRUCTIVE PULMONARY DISEASE [None]
  - COLON CANCER [None]
  - EMPHYSEMA [None]
